FAERS Safety Report 11230402 (Version 1)
Quarter: 2015Q2

REPORT INFORMATION
  Report Type: Spontaneous
  Country: US (occurrence: None)
  Receive Date: 20150629
  Receipt Date: 20150629
  Transmission Date: 20150821
  Serious: No
  Sender: FDA-Public Use
  Company Number: None

PATIENT

DRUGS (1)
  1. SOTRADECOL [Suspect]
     Active Substance: SODIUM TETRADECYL SULFATE

REACTIONS (1)
  - Physical product label issue [None]
